FAERS Safety Report 19488333 (Version 1)
Quarter: 2021Q3

REPORT INFORMATION
  Report Type: Spontaneous
  Country: US (occurrence: US)
  Receive Date: 20210702
  Receipt Date: 20210702
  Transmission Date: 20211014
  Serious: No
  Sender: FDA-Public Use
  Company Number: US-ORGANON-O2106USA002288

PATIENT
  Age: 38 Year
  Sex: Female
  Weight: 75.28 kg

DRUGS (1)
  1. NEXPLANON [Suspect]
     Active Substance: ETONOGESTREL
     Indication: CONTRACEPTION
     Dosage: 1 IMPLANT EVERY 3 YEARS (LEFT ARM)
     Route: 059
     Dates: start: 2018

REACTIONS (8)
  - Blood pressure abnormal [Unknown]
  - Nausea [Unknown]
  - Irritability [Unknown]
  - Menstruation irregular [Unknown]
  - Weight increased [Unknown]
  - Intermenstrual bleeding [Unknown]
  - Dysmenorrhoea [Unknown]
  - Hot flush [Unknown]

NARRATIVE: CASE EVENT DATE: 202106
